FAERS Safety Report 20390281 (Version 1)
Quarter: 2022Q1

REPORT INFORMATION
  Report Type: Spontaneous
  Country: US (occurrence: US)
  Receive Date: 20220128
  Receipt Date: 20220128
  Transmission Date: 20220423
  Serious: No
  Sender: FDA-Public Use
  Company Number: US-ALLERGAN-2115814US

PATIENT
  Sex: Female

DRUGS (2)
  1. BOTOX COSMETIC [Suspect]
     Active Substance: ONABOTULINUMTOXINA
     Indication: Skin wrinkling
     Dosage: 30-35 UNITS, SINGLE
  2. TESTOSTERONE [Concomitant]
     Active Substance: TESTOSTERONE

REACTIONS (8)
  - Weight decreased [Unknown]
  - Off label use [Unknown]
  - Multiple use of single-use product [Unknown]
  - Product preparation error [Unknown]
  - Poor quality product administered [Unknown]
  - Drug ineffective [Unknown]
  - Product quality issue [Unknown]
  - Suspected counterfeit product [Unknown]
